FAERS Safety Report 13704602 (Version 1)
Quarter: 2017Q2

REPORT INFORMATION
  Report Type: Spontaneous
  Country: US (occurrence: US)
  Receive Date: 20170630
  Receipt Date: 20170630
  Transmission Date: 20170830
  Serious: No
  Sender: FDA-Public Use
  Company Number: US-LUPIN PHARMACEUTICALS INC.-2017-03117

PATIENT
  Sex: Female
  Weight: 59 kg

DRUGS (1)
  1. MIBELAS 24 FE [Suspect]
     Active Substance: ETHINYL ESTRADIOL\NORETHINDRONE ACETATE
     Indication: ENDOMETRIOSIS
     Dosage: 1MG/20MCG, QD
     Route: 048
     Dates: start: 20170511, end: 20170604

REACTIONS (2)
  - Product use in unapproved indication [Unknown]
  - Menstruation irregular [Unknown]
